FAERS Safety Report 5120013-4 (Version None)
Quarter: 2006Q4

REPORT INFORMATION
  Report Type: 
  Country: None (occurrence: None)
  Receive Date: 20061003
  Receipt Date: 20060928
  Transmission Date: 20070319
  Serious: Yes (Other)
  Sender: FDA-Public Use
  Company Number: FR-BRISTOL-MYERS SQUIBB COMPANY-13526033

PATIENT
  Age: 64 Year
  Sex: Female

DRUGS (3)
  1. APROVEL [Suspect]
     Indication: HYPERTENSION
     Route: 048
     Dates: start: 20060201, end: 20060927
  2. APROVEL [Suspect]
     Indication: DIABETES MELLITUS
     Route: 048
     Dates: start: 20060201, end: 20060927
  3. STAGID [Concomitant]

REACTIONS (1)
  - PSORIASIS [None]
